FAERS Safety Report 24755422 (Version 1)
Quarter: 2024Q4

REPORT INFORMATION
  Report Type: Spontaneous
  Country: IT (occurrence: IT)
  Receive Date: 20241219
  Receipt Date: 20241219
  Transmission Date: 20250115
  Serious: Yes (Other)
  Sender: FRESENIUS KABI
  Company Number: None

PATIENT
  Age: 16 Year
  Sex: Male
  Weight: 56 kg

DRUGS (3)
  1. IRINOTECAN [Suspect]
     Active Substance: IRINOTECAN
     Indication: Neuroblastoma
     Dosage: 80 MG, CONCENTRATE FOR SOLUTION FOR INFUSION
     Route: 042
     Dates: start: 20241122, end: 20241126
  2. DINUTUXIMAB BETA [Suspect]
     Active Substance: DINUTUXIMAB BETA
     Indication: Neuroblastoma
     Dosage: 15.8 MILLIGRAM, CONCENTRATE FOR SOLUTION FOR INFUSION?FOA - SOLUTION FOR INFUSION
     Route: 042
     Dates: start: 20241125
  3. MORPHINE HYDROCHLORIDE [Concomitant]
     Active Substance: MORPHINE HYDROCHLORIDE
     Indication: Chemotherapy side effect prophylaxis
     Dosage: SOLUTION FOR INJECTION
     Route: 042
     Dates: start: 20241125

REACTIONS (2)
  - Arthralgia [Recovering/Resolving]
  - Urinary retention [Recovering/Resolving]

NARRATIVE: CASE EVENT DATE: 20241126
